FAERS Safety Report 8785310 (Version 2)
Quarter: 2013Q1

REPORT INFORMATION
  Report Type: Spontaneous
  Country: US (occurrence: US)
  Receive Date: 20120914
  Receipt Date: 20130111
  Transmission Date: 20140127
  Serious: No
  Sender: FDA-Public Use
  Company Number: US-009507513-1209USA000647

PATIENT
  Age: 17 None
  Sex: Female
  Weight: 68.27 kg

DRUGS (1)
  1. IMPLANON [Suspect]
     Indication: CONTRACEPTION
     Dosage: 1 DF, UP TO 3 YEARS
     Route: 059
     Dates: start: 20120309

REACTIONS (11)
  - Tremor [Unknown]
  - Abasia [Unknown]
  - Eye movement disorder [Unknown]
  - Thirst [Unknown]
  - Metrorrhagia [Recovered/Resolved]
  - Headache [Not Recovered/Not Resolved]
  - Vomiting [Unknown]
  - Abdominal pain [Not Recovered/Not Resolved]
  - Back pain [Unknown]
  - Amenorrhoea [Unknown]
  - Metrorrhagia [Unknown]
